FAERS Safety Report 5524503-1 (Version None)
Quarter: 2007Q4

REPORT INFORMATION
  Report Type: 
  Country: None (occurrence: None)
  Receive Date: 20071122
  Receipt Date: 20071114
  Transmission Date: 20080405
  Serious: Yes (Other)
  Sender: FDA-Public Use
  Company Number: PHBS2007US19172

PATIENT
  Age: 51 Year
  Sex: Female

DRUGS (1)
  1. LETROZOLE [Suspect]
     Indication: BREAST CANCER
     Route: 065
     Dates: start: 20040201

REACTIONS (2)
  - ERYTHEMA NODOSUM [None]
  - RASH ERYTHEMATOUS [None]
